FAERS Safety Report 17716988 (Version 4)
Quarter: 2020Q3

REPORT INFORMATION
  Report Type: Spontaneous
  Country: US (occurrence: US)
  Receive Date: 20200428
  Receipt Date: 20200930
  Transmission Date: 20201102
  Serious: No
  Sender: FDA-Public Use
  Company Number: US-SA-2020SA107400

PATIENT

DRUGS (3)
  1. DUPIXENT [Suspect]
     Active Substance: DUPILUMAB
     Indication: DERMATITIS ATOPIC
     Dosage: 300 MG, QOW
     Route: 058
     Dates: start: 20200117
  2. BETAMETH DIPROPIONATE [Concomitant]
     Dosage: LOTION
  3. BETAMETH DIPROPIONATE [Concomitant]

REACTIONS (5)
  - Sleep disorder [Unknown]
  - Rash [Unknown]
  - Dermatitis atopic [Unknown]
  - Product dose omission issue [Unknown]
  - Discomfort [Unknown]

NARRATIVE: CASE EVENT DATE: 2020
